FAERS Safety Report 21714848 (Version 1)
Quarter: 2022Q4

REPORT INFORMATION
  Report Type: Spontaneous
  Country: US (occurrence: None)
  Receive Date: 20221209
  Receipt Date: 20221209
  Transmission Date: 20230113
  Serious: Yes (Hospitalization)
  Sender: FDA-Public Use
  Company Number: None

PATIENT
  Age: 70 Year
  Sex: Female
  Weight: 65.45 kg

DRUGS (10)
  1. MAVYRET [Suspect]
     Active Substance: GLECAPREVIR\PIBRENTASVIR
     Dosage: FREQUENCY : DAILY;?
     Route: 048
     Dates: start: 20210108, end: 20210304
  2. ACETAMINOPHEN [Concomitant]
  3. ACYCLOVIR [Concomitant]
  4. ASPIRIN [Concomitant]
  5. CIPROFLOXACIN [Concomitant]
  6. ENVARSUS [Concomitant]
  7. MAVYRET [Concomitant]
  8. LEVOTHYROXINE [Concomitant]
  9. MAGNESIUM [Concomitant]
  10. BARIUM [Concomitant]
     Active Substance: BARIUM

REACTIONS (7)
  - Hydronephrosis [None]
  - Hydroureter [None]
  - Ureteric stenosis [None]
  - Acute kidney injury [None]
  - Urinoma [None]
  - Device expulsion [None]
  - Device use issue [None]

NARRATIVE: CASE EVENT DATE: 20210202
